FAERS Safety Report 12550662 (Version 3)
Quarter: 2016Q3

REPORT INFORMATION
  Report Type: Report from Study
  Country: US (occurrence: US)
  Receive Date: 20160712
  Receipt Date: 20160823
  Transmission Date: 20161109
  Serious: Yes (Hospitalization)
  Sender: FDA-Public Use
  Company Number: US-BIOGEN-2016BI00262001

PATIENT
  Age: 63 Year
  Sex: Female

DRUGS (2)
  1. TYSABRI [Suspect]
     Active Substance: NATALIZUMAB
     Route: 042
     Dates: start: 2010
  2. TYSABRI [Suspect]
     Active Substance: NATALIZUMAB
     Indication: RELAPSING-REMITTING MULTIPLE SCLEROSIS
     Route: 065
     Dates: start: 20100714, end: 20101008

REACTIONS (6)
  - Cellulitis [Unknown]
  - Paraplegia [Unknown]
  - Lymphoedema [Not Recovered/Not Resolved]
  - Mobility decreased [Unknown]
  - Limb injury [Unknown]
  - Overweight [Unknown]

NARRATIVE: CASE EVENT DATE: 201606
